FAERS Safety Report 9133138 (Version 2)
Quarter: 2013Q2

REPORT INFORMATION
  Report Type: Spontaneous
  Country: US (occurrence: US)
  Receive Date: 20130301
  Receipt Date: 20130503
  Transmission Date: 20140414
  Serious: No
  Sender: FDA-Public Use
  Company Number: US-ROCHE-1189721

PATIENT
  Age: 19 Year
  Sex: Female
  Weight: 65.38 kg

DRUGS (1)
  1. TAMIFLU [Suspect]
     Indication: INFLUENZA
     Route: 048
     Dates: start: 20130206

REACTIONS (2)
  - Pain in extremity [Unknown]
  - Product quality issue [Unknown]
